FAERS Safety Report 6700664-3 (Version None)
Quarter: 2010Q2

REPORT INFORMATION
  Report Type: 
  Country: None (occurrence: None)
  Receive Date: 20100428
  Receipt Date: 20100419
  Transmission Date: 20101027
  Serious: Yes (Hospitalization)
  Sender: FDA-Public Use
  Company Number: PHHY2010AR24773

PATIENT
  Sex: Female

DRUGS (1)
  1. DIOVAN [Suspect]
     Indication: CORONARY ARTERY DISEASE
     Dosage: 2 DF, DAILY
     Dates: start: 20100301

REACTIONS (1)
  - CATHETERISATION CARDIAC [None]
